FAERS Safety Report 7305865-1 (Version None)
Quarter: 2011Q1

REPORT INFORMATION
  Report Type: 
  Country: None (occurrence: None)
  Receive Date: 20110222
  Receipt Date: 20110209
  Transmission Date: 20110831
  Serious: Yes (Hospitalization)
  Sender: FDA-Public Use
  Company Number: JP-EISAI INC-E3810-04130-SPO-JP

PATIENT
  Sex: Female
  Weight: 58 kg

DRUGS (12)
  1. RHYTHMY [Concomitant]
     Route: 048
     Dates: start: 20090602
  2. ALESION [Concomitant]
  3. FOLIAMIN [Concomitant]
     Route: 048
     Dates: start: 20100705
  4. METHYCOBAL [Concomitant]
     Route: 048
     Dates: start: 20100712
  5. PREDONINE [Concomitant]
     Route: 048
     Dates: start: 20100831
  6. PARIET (RABEPRAZOLE) [Suspect]
     Route: 048
     Dates: start: 20100829, end: 20101003
  7. MYCOSYST [Concomitant]
     Route: 048
     Dates: start: 20100401
  8. MAGMITT [Concomitant]
     Route: 048
     Dates: start: 20090626
  9. BAKTAR [Concomitant]
     Route: 048
     Dates: start: 20100501
  10. BONZOL [Concomitant]
     Route: 048
     Dates: start: 20100716
  11. CINAL [Concomitant]
     Route: 048
     Dates: start: 20100826
  12. HUMALOG [Concomitant]
     Dates: start: 20100609

REACTIONS (5)
  - MYELODYSPLASTIC SYNDROME [None]
  - LYMPHOCYTE STIMULATION TEST POSITIVE [None]
  - PYREXIA [None]
  - DIZZINESS [None]
  - AGRANULOCYTOSIS [None]
